FAERS Safety Report 20562800 (Version 1)
Quarter: 2022Q1

REPORT INFORMATION
  Report Type: Spontaneous
  Country: US (occurrence: US)
  Receive Date: 20220307
  Receipt Date: 20220307
  Transmission Date: 20220423
  Serious: No
  Sender: FDA-Public Use
  Company Number: US-BoehringerIngelheim-2022-BI-157936

PATIENT
  Age: 64 Year
  Sex: Female

DRUGS (1)
  1. PRADAXA [Suspect]
     Active Substance: DABIGATRAN ETEXILATE MESYLATE
     Indication: Product used for unknown indication
     Route: 048

REACTIONS (6)
  - COVID-19 [Recovering/Resolving]
  - Atrial fibrillation [Recovering/Resolving]
  - Gastrointestinal haemorrhage [Unknown]
  - Bedridden [Unknown]
  - Back disorder [Unknown]
  - Tendon disorder [Unknown]

NARRATIVE: CASE EVENT DATE: 20220106
